FAERS Safety Report 21199492 (Version 2)
Quarter: 2022Q3

REPORT INFORMATION
  Report Type: Spontaneous
  Country: JP (occurrence: JP)
  Receive Date: 20220811
  Receipt Date: 20220907
  Transmission Date: 20221026
  Serious: Yes (Other)
  Sender: FDA-Public Use
  Company Number: JP-JNJFOC-20220811966

PATIENT
  Age: 20 Year
  Sex: Female

DRUGS (5)
  1. EPOPROSTENOL [Suspect]
     Active Substance: EPOPROSTENOL
     Indication: Pulmonary arterial hypertension
     Dosage: DOSE UNKNOWN
     Route: 041
  2. EPOPROSTENOL [Suspect]
     Active Substance: EPOPROSTENOL
     Route: 041
  3. EPOPROSTENOL [Suspect]
     Active Substance: EPOPROSTENOL
     Route: 041
  4. EPOPROSTENOL [Suspect]
     Active Substance: EPOPROSTENOL
     Route: 041
  5. EPOPROSTENOL [Suspect]
     Active Substance: EPOPROSTENOL
     Indication: Pulmonary arterial hypertension
     Route: 041

REACTIONS (2)
  - Cardiac failure [Recovering/Resolving]
  - Pulmonary hypertension [Unknown]
